FAERS Safety Report 17485281 (Version 2)
Quarter: 2020Q1

REPORT INFORMATION
  Report Type: Spontaneous
  Country: CA (occurrence: CA)
  Receive Date: 20200302
  Receipt Date: 20200310
  Transmission Date: 20200409
  Serious: Yes (Death)
  Sender: FDA-Public Use
  Company Number: CA-ACTELION-A-NJ2020-202314

PATIENT
  Age: 71 Year
  Sex: Male

DRUGS (11)
  1. OPSUMIT [Suspect]
     Active Substance: MACITENTAN
     Indication: PULMONARY ARTERIAL HYPERTENSION
     Dosage: 10 MG, QD
     Route: 048
     Dates: start: 20190605
  2. XARELTO [Concomitant]
     Active Substance: RIVAROXABAN
     Dosage: 40 MG, OD
     Dates: start: 201611
  3. RABEPRAZOLE [Concomitant]
     Active Substance: RABEPRAZOLE
  4. PARACETAMOL W/PSEUDOEPHEDRINE HYDROCHLORIDE [Concomitant]
     Active Substance: ACETAMINOPHEN\PSEUDOEPHEDRINE HYDROCHLORIDE
  5. OBETICHOLIC ACID [Concomitant]
     Active Substance: OBETICHOLIC ACID
  6. FUROSEMIDE. [Concomitant]
     Active Substance: FUROSEMIDE
     Dosage: 20 MG, OD
  7. URISOL [Concomitant]
  8. IRBESARTAN. [Concomitant]
     Active Substance: IRBESARTAN
     Dosage: 75 MG, OD
  9. SOTALOL. [Concomitant]
     Active Substance: SOTALOL
     Dosage: 40 MG, BID
  10. METFORMIN [Concomitant]
     Active Substance: METFORMIN HYDROCHLORIDE
     Dosage: 500 MG, BID
  11. URSODIOL. [Concomitant]
     Active Substance: URSODIOL
     Dosage: 500 MG, BID

REACTIONS (4)
  - Autoimmune hepatitis [Fatal]
  - Gastrointestinal haemorrhage [Fatal]
  - Liver disorder [Fatal]
  - Varices oesophageal [Fatal]

NARRATIVE: CASE EVENT DATE: 20200217
